FAERS Safety Report 4906734-4 (Version None)
Quarter: 2006Q1

REPORT INFORMATION
  Report Type: 
  Country: None (occurrence: None)
  Receive Date: 20060206
  Receipt Date: 20060120
  Transmission Date: 20060701
  Serious: Yes (Other)
  Sender: FDA-Public Use
  Company Number: 2006012159

PATIENT
  Sex: 0

DRUGS (1)
  1. MACUGEN [Suspect]
     Indication: ILL-DEFINED DISORDER
     Dosage: PARENTERAL
     Route: 051

REACTIONS (2)
  - RETINAL TEAR [None]
  - VITREOUS FLOATERS [None]
